FAERS Safety Report 7197547-4 (Version None)
Quarter: 2010Q4

REPORT INFORMATION
  Report Type: 
  Country: None (occurrence: None)
  Receive Date: 20101227
  Receipt Date: 20101220
  Transmission Date: 20110411
  Serious: Yes (Death)
  Sender: FDA-Public Use
  Company Number: ZA-SANOFI-AVENTIS-2010SA055576

PATIENT
  Age: 74 Year
  Sex: Female

DRUGS (5)
  1. DOCETAXEL [Suspect]
     Route: 041
     Dates: start: 20100708, end: 20100708
  2. DOCETAXEL [Suspect]
     Route: 041
     Dates: start: 20100909, end: 20100909
  3. GRANOCYTE [Suspect]
     Indication: PROPHYLAXIS
     Dosage: 7 DAYS EACH CYCLE DOSE:34 MILLIUNIT(S)
     Dates: start: 20100709, end: 20100715
  4. GRANOCYTE [Suspect]
     Dosage: DOSE:34 MILLIUNIT(S)
     Dates: end: 20100915
  5. ALL OTHER THERAPEUTIC PRODUCTS [Concomitant]
     Dates: start: 20100909

REACTIONS (1)
  - DEATH [None]
